FAERS Safety Report 21702624 (Version 2)
Quarter: 2022Q4

REPORT INFORMATION
  Report Type: Report from Study
  Country: US (occurrence: None)
  Receive Date: 20221209
  Receipt Date: 20221220
  Transmission Date: 20230113
  Serious: Yes (Other)
  Sender: FDA-Public Use
  Company Number: US-Merck Healthcare KGaA-9370159

PATIENT
  Sex: Female
  Weight: 76 kg

DRUGS (1)
  1. REBIF [Suspect]
     Active Substance: INTERFERON BETA-1A
     Indication: Multiple sclerosis
     Dosage: PFS (PREFILLED SYRINGE) 44MCG ON MONDAY AND FRIDAY
     Route: 058
     Dates: start: 20060220

REACTIONS (4)
  - Hypertension [Not Recovered/Not Resolved]
  - Lack of injection site rotation [Unknown]
  - Off label use [Unknown]
  - Product administration interrupted [Unknown]
